FAERS Safety Report 18955751 (Version 1)
Quarter: 2021Q1

REPORT INFORMATION
  Report Type: Report from Study
  Country: CA (occurrence: CA)
  Receive Date: 20210301
  Receipt Date: 20210301
  Transmission Date: 20210420
  Serious: Yes (Other)
  Sender: FDA-Public Use
  Company Number: CA-PFIZER INC-2021200380

PATIENT
  Age: 68 Year
  Sex: Male

DRUGS (12)
  1. RIBOFLAVIN 5^?PHOSPHATE [Concomitant]
     Dosage: UNK, 1X/DAY
     Route: 065
  2. DEFERASIROX. [Suspect]
     Active Substance: DEFERASIROX
     Indication: ANAEMIA
  3. DEFERASIROX. [Suspect]
     Active Substance: DEFERASIROX
     Indication: IRON OVERLOAD
     Dosage: 900 MG, 1X/DAY
     Route: 048
  4. DEFERASIROX. [Suspect]
     Active Substance: DEFERASIROX
     Dosage: 1080 MG, 1X/DAY
     Route: 048
  5. AMLODIPINE BESILATE [Suspect]
     Active Substance: AMLODIPINE BESYLATE
     Route: 048
  6. DEFERASIROX. [Suspect]
     Active Substance: DEFERASIROX
     Dosage: 900 MG, 1X/DAY
     Route: 048
  7. TYLENOL [Concomitant]
     Active Substance: ACETAMINOPHEN
     Route: 065
  8. DEFERASIROX. [Suspect]
     Active Substance: DEFERASIROX
     Dosage: 360 MG, 1X/DAY
     Route: 048
  9. DEFERASIROX. [Suspect]
     Active Substance: DEFERASIROX
     Dosage: 1080 MG, 1X/DAY
     Route: 048
  10. DEFERASIROX. [Suspect]
     Active Substance: DEFERASIROX
     Dosage: 720 MG, 1X/DAY
     Route: 048
  11. DEFERASIROX. [Suspect]
     Active Substance: DEFERASIROX
     Indication: ANAEMIA
     Dosage: 1260 MG, 1X/DAY
     Route: 048
  12. DEFERASIROX. [Suspect]
     Active Substance: DEFERASIROX
     Indication: IRON OVERLOAD
     Dosage: 900 MG, 1X/DAY
     Route: 048

REACTIONS (10)
  - Paraesthesia [Not Recovered/Not Resolved]
  - Therapeutic product effect incomplete [Not Recovered/Not Resolved]
  - Abdominal pain upper [Not Recovered/Not Resolved]
  - Hypoaesthesia [Not Recovered/Not Resolved]
  - Red blood cell count decreased [Not Recovered/Not Resolved]
  - Vomiting [Not Recovered/Not Resolved]
  - Dyspepsia [Not Recovered/Not Resolved]
  - Hypersensitivity [Not Recovered/Not Resolved]
  - Diarrhoea [Not Recovered/Not Resolved]
  - Haemoglobin decreased [Not Recovered/Not Resolved]
